FAERS Safety Report 8366528-7 (Version None)
Quarter: 2012Q2

REPORT INFORMATION
  Report Type: 
  Country: None (occurrence: None)
  Receive Date: 20120516
  Receipt Date: 20120516
  Transmission Date: 20120825
  Serious: Yes (Disabling, Other)
  Sender: FDA-Public Use
  Company Number: None

PATIENT
  Sex: Female

DRUGS (1)
  1. BRIMONIDINE TARTRATE [Suspect]
     Indication: GLAUCOMA
     Dosage: 1 DROP EACH EYE - AM + PM 2X DAY EYE

REACTIONS (4)
  - PRODUCT SUBSTITUTION ISSUE [None]
  - PHOTOPHOBIA [None]
  - GLARE [None]
  - VISUAL IMPAIRMENT [None]
